FAERS Safety Report 8774293 (Version 1)
Quarter: 2012Q4

REPORT INFORMATION
  Report Type: 
  Country: TR (occurrence: TR)
  Receive Date: 20120907
  Receipt Date: 20120907
  Transmission Date: 20130627
  Serious: Yes (Life-Threatening)
  Sender: FDA-Public Use
  Company Number: TR-BAUSCH-BL-2012-000732

PATIENT
  Age: 90 Day
  Sex: Female
  Weight: 1 kg

DRUGS (1)
  1. CYCLOPENTOLATE [Suspect]
     Indication: RETINOPATHY OF PREMATURITY
     Dosage: ONE DROP IN EACH EYE, SIX TIMES
     Route: 047

REACTIONS (5)
  - Respiratory distress [Recovered/Resolved]
  - Cyanosis neonatal [Recovered/Resolved]
  - Vomiting [Recovered/Resolved]
  - Abdominal distension [Recovered/Resolved]
  - Inappropriate schedule of drug administration [Recovered/Resolved]
